FAERS Safety Report 8584108-5 (Version None)
Quarter: 2012Q3

REPORT INFORMATION
  Report Type: 
  Country: None (occurrence: None)
  Receive Date: 20120810
  Receipt Date: 20120802
  Transmission Date: 20120928
  Serious: No
  Sender: FDA-Public Use
  Company Number: US-009507513-1208USA001585

PATIENT

DRUGS (6)
  1. ESTRADIOL [Concomitant]
  2. XANAX [Concomitant]
  3. IBUPROFEN [Concomitant]
  4. DOXAPRAM [Concomitant]
  5. AMBIEN [Concomitant]
  6. PEG-INTRON [Suspect]
     Indication: LEUKAEMIA
     Dosage: 50 MICROGRAM, QW
     Dates: start: 20120726

REACTIONS (2)
  - OFF LABEL USE [None]
  - INJECTION SITE ERYTHEMA [None]
